FAERS Safety Report 4522549-3 (Version None)
Quarter: 2004Q4

REPORT INFORMATION
  Report Type: 
  Country: None (occurrence: None)
  Receive Date: 20041207
  Receipt Date: 20041117
  Transmission Date: 20050328
  Serious: Yes (Hospitalization)
  Sender: FDA-Public Use
  Company Number: JP_040202669

PATIENT
  Age: 69 Year

DRUGS (6)
  1. ZYPREXA [Suspect]
     Indication: SCHIZOPHRENIA, PARANOID TYPE
     Dosage: 5 MG/1 DAY
     Dates: start: 20020715, end: 20020719
  2. RISPERDAL [Concomitant]
  3. TASMOLIN (BIPERIDEN) [Concomitant]
  4. PRAVASTATIN [Concomitant]
  5. LENDORM [Concomitant]
  6. LAXOBERON (SODIUM PICOSULFATE) [Concomitant]

REACTIONS (10)
  - ARTHRALGIA [None]
  - ASTHENIA [None]
  - DYSPHAGIA [None]
  - HYPOAESTHESIA [None]
  - LIVER DISORDER [None]
  - PARKINSON'S DISEASE [None]
  - PRODUCTIVE COUGH [None]
  - SCHIZOPHRENIA, PARANOID TYPE [None]
  - SLUGGISHNESS [None]
  - UPPER RESPIRATORY TRACT INFLAMMATION [None]
